FAERS Safety Report 5397162-9 (Version None)
Quarter: 2007Q3

REPORT INFORMATION
  Report Type: 
  Country: None (occurrence: None)
  Receive Date: 20070723
  Receipt Date: 20070709
  Transmission Date: 20080115
  Serious: Yes (Hospitalization)
  Sender: FDA-Public Use
  Company Number: B0479038A

PATIENT
  Age: 14 Year
  Sex: Female

DRUGS (5)
  1. FLUTICASONE PROPIONATE+SALMETEROL XINAFOATE [Suspect]
     Indication: ASTHMA
     Dosage: TWICE PER DAY / INHALED
     Route: 055
  2. RITONAVIR [Suspect]
     Indication: HIV INFECTION
  3. MONTELUKAST SODIUM [Concomitant]
  4. DIDANOSINE [Concomitant]
  5. TENOFOVIR [Concomitant]

REACTIONS (14)
  - ADRENAL INSUFFICIENCY [None]
  - ASTHENIA [None]
  - BLOOD CORTISOL DECREASED [None]
  - CUSHING'S SYNDROME [None]
  - DRUG INTERACTION [None]
  - DRUG LEVEL INCREASED [None]
  - DYSPNOEA EXERTIONAL [None]
  - FACIAL PAIN [None]
  - FATIGUE [None]
  - HEADACHE [None]
  - LEUKOCYTOSIS [None]
  - OEDEMA PERIPHERAL [None]
  - PAROTITIS [None]
  - WEIGHT INCREASED [None]
